FAERS Safety Report 5876619-8 (Version None)
Quarter: 2008Q3

REPORT INFORMATION
  Report Type: 
  Country: None (occurrence: None)
  Receive Date: 20080908
  Receipt Date: 20080825
  Transmission Date: 20090109
  Serious: Yes (Other)
  Sender: FDA-Public Use
  Company Number: 2008AL007963

PATIENT
  Age: 52 Year
  Sex: Male
  Weight: 124.2856 kg

DRUGS (14)
  1. DIGOXIN [Suspect]
     Indication: ATRIAL FIBRILLATION
     Dosage: 0.125MG, DAILY PO
     Route: 048
     Dates: start: 20050101, end: 20080501
  2. PERCOCET [Concomitant]
  3. HYDROCHLOROTHIAZIDE [Concomitant]
  4. VERAPAMIL [Concomitant]
  5. ASPIRIN [Concomitant]
  6. VALIUM [Concomitant]
  7. PROVIGIL [Concomitant]
  8. MULTI-VITAMIN [Concomitant]
  9. VITAMIN B [Concomitant]
  10. SYNTHROID [Concomitant]
  11. HYDROCONE [Concomitant]
  12. LEVOTHYROINE [Concomitant]
  13. ESOMEPRAZOLE MAGNESIUM [Concomitant]
  14. VYTORIN [Concomitant]

REACTIONS (24)
  - BACK PAIN [None]
  - DIZZINESS [None]
  - DYSPNOEA [None]
  - ERECTILE DYSFUNCTION [None]
  - FATIGUE [None]
  - HEADACHE [None]
  - HERNIA REPAIR [None]
  - HYPOTENSION [None]
  - JOINT INJURY [None]
  - KNEE ARTHROPLASTY [None]
  - LIBIDO DECREASED [None]
  - LOSS OF CONSCIOUSNESS [None]
  - MUSCULOSKELETAL PAIN [None]
  - MYOCARDIAL INFARCTION [None]
  - NAUSEA [None]
  - NOCTURIA [None]
  - PALPITATIONS [None]
  - PENILE OPERATION [None]
  - POLLAKIURIA [None]
  - SPINAL LAMINECTOMY [None]
  - STRESS [None]
  - TONSILLECTOMY [None]
  - URINARY HESITATION [None]
  - URINARY RETENTION [None]
